FAERS Safety Report 8289388-1 (Version None)
Quarter: 2012Q2

REPORT INFORMATION
  Report Type: 
  Country: None (occurrence: None)
  Receive Date: 20120417
  Receipt Date: 20120410
  Transmission Date: 20120825
  Serious: Yes (Death)
  Sender: FDA-Public Use
  Company Number: JP-ASTRAZENECA-2012SE24249

PATIENT
  Age: 68 Year
  Sex: Male

DRUGS (3)
  1. SEROQUEL [Suspect]
     Indication: FRONTOTEMPORAL DEMENTIA
     Route: 048
     Dates: start: 20100101
  2. SODIUM CHLORIDE [Concomitant]
  3. MAGMITT [Concomitant]

REACTIONS (2)
  - OFF LABEL USE [None]
  - SUDDEN DEATH [None]
